FAERS Safety Report 6157537-7 (Version None)
Quarter: 2009Q2

REPORT INFORMATION
  Report Type: 
  Country: None (occurrence: None)
  Receive Date: 20090416
  Receipt Date: 20090407
  Transmission Date: 20091009
  Serious: Yes (Hospitalization)
  Sender: FDA-Public Use
  Company Number: FR-ASTRAZENECA-2009CG00658

PATIENT
  Age: 25611 Day
  Sex: Male

DRUGS (2)
  1. CASODEX [Suspect]
     Indication: PROSTATE CANCER METASTATIC
     Route: 048
     Dates: start: 20090112, end: 20090406
  2. ZD6474 CODE NOT BROKEN [Suspect]
     Indication: PROSTATE CANCER METASTATIC
     Route: 048
     Dates: start: 20090112, end: 20090406

REACTIONS (1)
  - PHOTOSENSITIVITY REACTION [None]
